FAERS Safety Report 10302107 (Version 1)
Quarter: 2014Q3

REPORT INFORMATION
  Report Type: Spontaneous
  Country: US (occurrence: US)
  Receive Date: 20140714
  Receipt Date: 20140714
  Transmission Date: 20150326
  Serious: No
  Sender: FDA-Public Use
  Company Number: US-GILEAD-2013-0080450

PATIENT
  Age: 36 Year
  Sex: Male

DRUGS (2)
  1. LETAIRIS [Suspect]
     Active Substance: AMBRISENTAN
  2. LETAIRIS [Suspect]
     Active Substance: AMBRISENTAN
     Indication: PRODUCT USED FOR UNKNOWN INDICATION
     Dosage: 5 MG, QD
     Dates: end: 20130729

REACTIONS (3)
  - Fluid retention [Not Recovered/Not Resolved]
  - Oedema [Not Recovered/Not Resolved]
  - Unevaluable event [Not Recovered/Not Resolved]

NARRATIVE: CASE EVENT DATE: 201307
